FAERS Safety Report 4827796-9 (Version None)
Quarter: 2005Q4

REPORT INFORMATION
  Report Type: 
  Country: None (occurrence: None)
  Receive Date: 20051110
  Receipt Date: 20051104
  Transmission Date: 20060501
  Serious: Yes (Hospitalization)
  Sender: FDA-Public Use
  Company Number: GXBR2005US01667

PATIENT
  Age: 35 Year
  Sex: Female
  Weight: 77.1 kg

DRUGS (2)
  1. SPIRONOLACTONE [Suspect]
     Indication: ACNE
     Dosage: SEE IMAGE, ORAL
     Route: 048
     Dates: start: 20020801, end: 20030101
  2. SPIRONOLACTONE [Suspect]
     Indication: ACNE
     Dosage: SEE IMAGE, ORAL
     Route: 048
     Dates: start: 20030101, end: 20040801

REACTIONS (2)
  - GOITRE [None]
  - PAPILLARY THYROID CANCER [None]
